FAERS Safety Report 5993668-X (Version None)
Quarter: 2008Q4

REPORT INFORMATION
  Report Type: 
  Country: None (occurrence: None)
  Receive Date: 20081212
  Receipt Date: 20080617
  Transmission Date: 20090506
  Serious: No
  Sender: FDA-Public Use
  Company Number: US-AMGEN-KDL287862

PATIENT
  Sex: Female

DRUGS (1)
  1. ENBREL [Suspect]
     Indication: RHEUMATOID ARTHRITIS
     Route: 058
     Dates: start: 20070731

REACTIONS (4)
  - ARTHRALGIA [None]
  - BACK PAIN [None]
  - INJECTION SITE PAIN [None]
  - PAIN IN EXTREMITY [None]
